FAERS Safety Report 6701689-4 (Version None)
Quarter: 2010Q2

REPORT INFORMATION
  Report Type: 
  Country: None (occurrence: None)
  Receive Date: 20100429
  Receipt Date: 20100419
  Transmission Date: 20101027
  Serious: Yes (Hospitalization, Other)
  Sender: FDA-Public Use
  Company Number: PHHY2010GB13741

PATIENT
  Sex: Male

DRUGS (8)
  1. CLOZARIL [Suspect]
     Indication: SCHIZOPHRENIA
     Dosage: UNK
     Route: 048
     Dates: start: 20091109
  2. CLOZARIL [Suspect]
     Dosage: UNK
     Route: 048
     Dates: start: 20100302
  3. FLOXACILLIN SODIUM [Concomitant]
  4. CLARITHROMYCIN [Concomitant]
  5. LEVOFLOXACIN [Concomitant]
  6. DIAZEPAM [Concomitant]
     Dosage: 5 MG, BID
  7. HYOSCINE [Concomitant]
     Dosage: 300 UG, BID
  8. PROPRANOLOL [Concomitant]
     Dosage: 10 MG QDS

REACTIONS (11)
  - CARDIAC DISORDER [None]
  - DIZZINESS [None]
  - ELECTROCARDIOGRAM ABNORMAL [None]
  - FEELING ABNORMAL [None]
  - HYPERHIDROSIS [None]
  - LOWER RESPIRATORY TRACT INFECTION [None]
  - OXYGEN SATURATION DECREASED [None]
  - RESPIRATORY TRACT INFECTION [None]
  - SEDATION [None]
  - TACHYCARDIA [None]
  - THERAPEUTIC RESPONSE DECREASED [None]
